FAERS Safety Report 9383685 (Version 1)
Quarter: 2013Q3

REPORT INFORMATION
  Report Type: Report from Study
  Country: US (occurrence: US)
  Receive Date: 20130704
  Receipt Date: 20130704
  Transmission Date: 20140515
  Serious: No
  Sender: FDA-Public Use
  Company Number: US-009507513-1307USA000121

PATIENT
  Sex: Female

DRUGS (8)
  1. VICTRELIS [Suspect]
     Indication: HEPATITIS C
     Dosage: 2400 MG, QD, 12 TABLETS DAILY
     Route: 048
  2. PEGASYS [Suspect]
     Indication: HEPATITIS C
     Dosage: 180 MG, QW
     Route: 058
  3. COPEGUS [Suspect]
     Indication: HEPATITIS C
     Dosage: 600 MG, QD
     Route: 048
  4. CITALOPRAM [Concomitant]
     Indication: DEPRESSION
     Dosage: 40 MG, QD
     Route: 048
  5. MELOXICAM [Concomitant]
     Indication: ARTHRITIS
     Dosage: 15 MG, QD
     Route: 048
  6. OMEPRAZOLE [Concomitant]
     Indication: GASTROOESOPHAGEAL REFLUX DISEASE
     Dosage: 20 MG, QD
     Route: 048
  7. TRAZODONE HYDROCHLORIDE [Concomitant]
     Dosage: 50 MG, QD, 1-2 TABS AT HS
     Route: 048
  8. ROPINIROLE [Concomitant]
     Indication: RESTLESS LEGS SYNDROME
     Dosage: 1 MG, QD
     Route: 048

REACTIONS (12)
  - Mass [Not Recovered/Not Resolved]
  - Migraine [Unknown]
  - Pyrexia [Recovering/Resolving]
  - Cold sweat [Recovering/Resolving]
  - Influenza like illness [Recovering/Resolving]
  - Weight decreased [Recovering/Resolving]
  - Glossodynia [Recovering/Resolving]
  - Oral pain [Recovering/Resolving]
  - Diarrhoea [Not Recovered/Not Resolved]
  - Nausea [Recovering/Resolving]
  - Vomiting [Recovering/Resolving]
  - Asthenia [Not Recovered/Not Resolved]
